FAERS Safety Report 4896222-6 (Version None)
Quarter: 2006Q1

REPORT INFORMATION
  Report Type: 
  Country: None (occurrence: None)
  Receive Date: 20060126
  Receipt Date: 20060116
  Transmission Date: 20060701
  Serious: Yes (Other)
  Sender: FDA-Public Use
  Company Number: 2006008668

PATIENT
  Sex: Male
  Weight: 79.3795 kg

DRUGS (3)
  1. VIAGRA [Suspect]
     Indication: ERECTILE DYSFUNCTION
     Dosage: 25 MG (25 MG, 1 AS NECESSARY)
  2. VITAMINS (VITAMINS) [Concomitant]
  3. ZANTAC [Concomitant]

REACTIONS (4)
  - DRUG EFFECT DECREASED [None]
  - HEADACHE [None]
  - MACULAR DEGENERATION [None]
  - SCOTOMA [None]
